FAERS Safety Report 7276565-1 (Version None)
Quarter: 2011Q1

REPORT INFORMATION
  Report Type: 
  Country: None (occurrence: None)
  Receive Date: 20110204
  Receipt Date: 20110126
  Transmission Date: 20110831
  Serious: Yes (Hospitalization)
  Sender: FDA-Public Use
  Company Number: FR-ASTRAZENECA-2011SE04374

PATIENT
  Age: 63 Year
  Sex: Male

DRUGS (8)
  1. PLAVIX [Concomitant]
     Route: 048
  2. CRESTOR [Suspect]
     Route: 048
     Dates: start: 20090101, end: 20101220
  3. OMEPRAZOLE [Concomitant]
     Route: 048
  4. BROMAZEPAM [Concomitant]
     Route: 048
  5. SELOKEN [Concomitant]
     Route: 048
  6. ACIDE FUSIDIQUE [Interacting]
     Route: 002
     Dates: start: 20101101, end: 20101220
  7. DALACINE [Concomitant]
     Route: 048
     Dates: start: 20101101
  8. ASPIRIN [Concomitant]
     Route: 048

REACTIONS (3)
  - DRUG INTERACTION [None]
  - RENAL FAILURE ACUTE [None]
  - RHABDOMYOLYSIS [None]
